FAERS Safety Report 7693594-4 (Version None)
Quarter: 2011Q3

REPORT INFORMATION
  Report Type: 
  Country: None (occurrence: None)
  Receive Date: 20110819
  Receipt Date: 20110816
  Transmission Date: 20111222
  Serious: Yes (Other)
  Sender: FDA-Public Use
  Company Number: US-ABBOTT-11P-163-0734006-00

PATIENT
  Sex: Female
  Weight: 61.29 kg

DRUGS (6)
  1. HUMIRA [Suspect]
     Indication: OVERLAP SYNDROME
  2. SULFASALAZINE [Concomitant]
  3. METHOTREXATE [Concomitant]
     Indication: PRODUCT USED FOR UNKNOWN INDICATION
  4. SULFASALAZINE [Concomitant]
     Indication: PRODUCT USED FOR UNKNOWN INDICATION
  5. METHOTREXATE [Concomitant]
  6. HUMIRA [Suspect]
     Indication: POLYARTHRITIS
     Dates: start: 20101122, end: 20110401

REACTIONS (4)
  - WEIGHT DECREASED [None]
  - LYMPHADENOPATHY [None]
  - BONE MARROW DISORDER [None]
  - LYMPHOID TISSUE HYPERPLASIA [None]
